FAERS Safety Report 4886775-6 (Version None)
Quarter: 2006Q1

REPORT INFORMATION
  Report Type: 
  Country: None (occurrence: None)
  Receive Date: 20060119
  Receipt Date: 20060111
  Transmission Date: 20060701
  Serious: Yes (Hospitalization)
  Sender: FDA-Public Use
  Company Number: 2005BI021213

PATIENT
  Age: 53 Year
  Sex: Male
  Weight: 72 kg

DRUGS (2)
  1. AVONEX [Suspect]
     Indication: MULTIPLE SCLEROSIS
     Dosage: 30 UG; QW; IM
     Route: 030
     Dates: start: 20020101, end: 20040801
  2. AVONEX [Suspect]
     Indication: MULTIPLE SCLEROSIS
     Dosage: 30 UG; QW; IM
     Route: 030
     Dates: start: 20040801, end: 20040825

REACTIONS (3)
  - NON-HODGKIN'S LYMPHOMA STAGE IV [None]
  - PARALYSIS [None]
  - PNEUMONIA LEGIONELLA [None]
